FAERS Safety Report 7285400-7 (Version None)
Quarter: 2011Q1

REPORT INFORMATION
  Report Type: 
  Country: None (occurrence: None)
  Receive Date: 20110210
  Receipt Date: 20110127
  Transmission Date: 20110831
  Serious: Yes (Other)
  Sender: FDA-Public Use
  Company Number: JP-BAYER-201010424BYL

PATIENT
  Sex: Male
  Weight: 66 kg

DRUGS (9)
  1. NEXAVAR [Suspect]
     Indication: RENAL CELL CARCINOMA
     Route: 048
     Dates: start: 20090717, end: 20090803
  2. NEXAVAR [Suspect]
     Dosage: 400 MG (DAILY DOSE), QOD, ORAL
     Route: 048
     Dates: start: 20100122, end: 20100205
  3. NEXAVAR [Suspect]
     Route: 048
     Dates: start: 20090905, end: 20090921
  4. NEXAVAR [Suspect]
     Dosage: 400 MG (DAILY DOSE), , ORAL
     Route: 048
     Dates: start: 20090829, end: 20090901
  5. OLMETEC [Concomitant]
     Dosage: DAILY DOSE 20 MG
     Route: 048
  6. AMLODIPINE [Concomitant]
     Dosage: DAILY DOSE 5 MG
     Route: 048
  7. NEXAVAR [Suspect]
     Route: 048
     Dates: start: 20091005, end: 20091224
  8. NEXAVAR [Suspect]
     Dosage: 400 MG (DAILY DOSE), , ORAL
     Route: 048
     Dates: start: 20091225, end: 20100121
  9. TAKEPRON [Concomitant]
     Dosage: DAILY DOSE 15 MG
     Route: 048

REACTIONS (3)
  - BLOOD AMYLASE INCREASED [None]
  - HEPATIC FUNCTION ABNORMAL [None]
  - PALMAR-PLANTAR ERYTHRODYSAESTHESIA SYNDROME [None]
